FAERS Safety Report 7966187-9 (Version None)
Quarter: 2011Q4

REPORT INFORMATION
  Report Type: 
  Country: None (occurrence: None)
  Receive Date: 20111208
  Receipt Date: 20111201
  Transmission Date: 20120403
  Serious: Yes (Other)
  Sender: FDA-Public Use
  Company Number: PHHY2010CA15390

PATIENT
  Sex: Female

DRUGS (6)
  1. ZOLEDRONOC ACID [Suspect]
     Indication: OSTEOPOROSIS
     Dosage: UNK UKN, UNK
     Route: 042
     Dates: start: 20100225
  2. ACETYLSALICYLIC ACID SRT [Concomitant]
     Dosage: UNK UKN, UNK
  3. LIPITOR [Concomitant]
     Dosage: UNK UKN, UNK
  4. CALCIUM [Concomitant]
     Dosage: UNK UKN, UNK
  5. BIAXIN [Concomitant]
     Dosage: UNK UKN, UNK
  6. AMOXIL [Concomitant]
     Dosage: UNK UKN, UNK

REACTIONS (7)
  - APHAGIA [None]
  - HEADACHE [None]
  - OSTEOMYELITIS [None]
  - LABYRINTHITIS [None]
  - SWELLING [None]
  - TOOTH INFECTION [None]
  - BRONCHITIS [None]
